FAERS Safety Report 4405773-X (Version None)
Quarter: 2004Q3

REPORT INFORMATION
  Report Type: 
  Country: None (occurrence: None)
  Receive Date: 20040723
  Receipt Date: 20031209
  Transmission Date: 20050211
  Serious: No
  Sender: FDA-Public Use
  Company Number: US-GLAXOSMITHKLINE-A0442527A

PATIENT
  Age: 75 Year
  Sex: Female

DRUGS (4)
  1. AVANDIA [Suspect]
     Dosage: 4MG IN THE MORNING
     Route: 048
  2. AMITRIPTYLINE HCL [Concomitant]
  3. PROPOXY-N [Concomitant]
  4. ZOCOR [Concomitant]

REACTIONS (2)
  - DYSPNOEA [None]
  - FATIGUE [None]
